FAERS Safety Report 24187974 (Version 1)
Quarter: 2024Q3

REPORT INFORMATION
  Report Type: Spontaneous
  Country: US (occurrence: US)
  Receive Date: 20240808
  Receipt Date: 20240808
  Transmission Date: 20241016
  Serious: No
  Sender: AUROBINDO
  Company Number: US-AUROBINDO-AUR-APL-2024-009469

PATIENT
  Age: 69 Year
  Sex: Male
  Weight: 81.646 kg

DRUGS (2)
  1. LEVOFLOXACIN [Suspect]
     Active Substance: LEVOFLOXACIN
     Indication: Urinary tract infection
     Dosage: 500 MILLIGRAM, DAILY
     Route: 048
     Dates: start: 20240124, end: 20240129
  2. ALBUTEROL [Concomitant]
     Active Substance: ALBUTEROL
     Indication: Asthma
     Dosage: UNK (1 OR 2 INHALATIONS ABOUT 10 PM FOREVER SINCE 20-30 YEARS)
     Route: 065

REACTIONS (3)
  - Pain in extremity [Recovering/Resolving]
  - Tendon pain [Recovering/Resolving]
  - Gait disturbance [Recovering/Resolving]

NARRATIVE: CASE EVENT DATE: 20240128
